FAERS Safety Report 5882468-7 (Version None)
Quarter: 2008Q3

REPORT INFORMATION
  Report Type: 
  Country: None (occurrence: None)
  Receive Date: 20080913
  Receipt Date: 20080805
  Transmission Date: 20090109
  Serious: No
  Sender: FDA-Public Use
  Company Number: US-ABBOTT-08P-163-0469230-00

PATIENT
  Sex: Female
  Weight: 55.388 kg

DRUGS (6)
  1. HUMIRA [Suspect]
     Indication: RHEUMATOID ARTHRITIS
     Route: 058
     Dates: start: 20040101
  2. HUMIRA [Suspect]
     Route: 058
  3. HUMIRA [Suspect]
     Route: 058
     Dates: end: 20080624
  4. UNKNOWN ANTIBIOTIC [Suspect]
     Indication: URINARY TRACT INFECTION
     Route: 048
     Dates: start: 20080729
  5. BUTLBITAL [Concomitant]
     Indication: RHEUMATOID ARTHRITIS
  6. RISEDRONATE SODIUM [Concomitant]
     Indication: BONE DISORDER

REACTIONS (3)
  - URINARY TRACT INFECTION [None]
  - VAGINAL INFECTION [None]
  - VULVOVAGINAL MYCOTIC INFECTION [None]
